FAERS Safety Report 18571609 (Version 2)
Quarter: 2020Q4

REPORT INFORMATION
  Report Type: Report from Study
  Country: MX (occurrence: MX)
  Receive Date: 20201202
  Receipt Date: 20201219
  Transmission Date: 20210114
  Serious: Yes (Hospitalization, Other)
  Sender: FDA-Public Use
  Company Number: NVSC2020MX319915

PATIENT
  Age: 83 Year
  Sex: Female
  Weight: 74 kg

DRUGS (3)
  1. TASIGNA [Suspect]
     Active Substance: NILOTINIB
     Dosage: 4 YEARS AGO(1(200 MG) IN MORNING,AFTERNOON AND NIGHT)200 MG, TID
     Route: 048
     Dates: end: 202003
  2. TASIGNA [Suspect]
     Active Substance: NILOTINIB
     Dosage: (1(200 MG) IN MORNING AND NIGHT 200 MG, BID
     Route: 048
     Dates: start: 202003
  3. TASIGNA [Suspect]
     Active Substance: NILOTINIB
     Indication: CHRONIC MYELOID LEUKAEMIA
     Dosage: 600 MG, QD
     Route: 048

REACTIONS (6)
  - Microembolism [Recovered/Resolved]
  - Hemiplegia [Not Recovered/Not Resolved]
  - Confusional state [Not Recovered/Not Resolved]
  - Embolism [Recovered/Resolved with Sequelae]
  - Dysstasia [Not Recovered/Not Resolved]
  - Inappropriate schedule of product administration [Unknown]

NARRATIVE: CASE EVENT DATE: 20201117
